FAERS Safety Report 8556703-0 (Version None)
Quarter: 2012Q3

REPORT INFORMATION
  Report Type: 
  Country: None (occurrence: None)
  Receive Date: 20120801
  Receipt Date: 20120724
  Transmission Date: 20120928
  Serious: Yes (Hospitalization, Other)
  Sender: FDA-Public Use
  Company Number: US-ASTELLAS-2012US006143

PATIENT
  Sex: Male

DRUGS (3)
  1. PEPCID [Concomitant]
     Indication: PRODUCT USED FOR UNKNOWN INDICATION
     Dosage: UNK
     Route: 065
  2. VESICARE [Suspect]
     Indication: OBSTRUCTIVE UROPATHY
     Dosage: 5 MG, UID/QD
     Route: 048
     Dates: start: 20120226
  3. LISINOPRIL [Concomitant]
     Indication: PRODUCT USED FOR UNKNOWN INDICATION
     Dosage: UNK
     Route: 065

REACTIONS (11)
  - POLYCYTHAEMIA [None]
  - NIGHT SWEATS [None]
  - HAEMATOCHEZIA [None]
  - MALAISE [None]
  - FATIGUE [None]
  - MOVEMENT DISORDER [None]
  - OFF LABEL USE [None]
  - ASPARTATE AMINOTRANSFERASE INCREASED [None]
  - HOSPITALISATION [None]
  - WEIGHT DECREASED [None]
  - ASTHENIA [None]
